FAERS Safety Report 5520094-X (Version None)
Quarter: 2007Q4

REPORT INFORMATION
  Report Type: 
  Country: None (occurrence: None)
  Receive Date: 20071116
  Receipt Date: 20071109
  Transmission Date: 20080405
  Serious: Yes (Other)
  Sender: FDA-Public Use
  Company Number: JP-SHR-JP-2007-036846

PATIENT
  Age: 53 Year
  Sex: Female
  Weight: 42.5 kg

DRUGS (6)
  1. FLUDARA [Suspect]
     Indication: FOLLICLE CENTRE LYMPHOMA, FOLLICULAR GRADE I, II, III
     Dosage: 50 MG, 1X/DAY
     Route: 048
     Dates: start: 20070914, end: 20070916
  2. RITUXAN [Suspect]
     Indication: FOLLICLE CENTRE LYMPHOMA, FOLLICULAR GRADE I, II, III
     Dosage: 500 MG, 1X/DAY
     Route: 041
     Dates: start: 20070913, end: 20070913
  3. RITUXAN [Suspect]
     Dosage: 500 MG, 1X/DAY
     Route: 041
     Dates: start: 20070806, end: 20070806
  4. NOVANTRONE ^WYETH-AYERST^ [Suspect]
     Indication: FOLLICLE CENTRE LYMPHOMA, FOLLICULAR GRADE I, II, III
     Dosage: 14 MG, 1X/DAY
     Route: 041
     Dates: start: 20070914, end: 20070914
  5. DECADRON                                /NET/ [Concomitant]
     Indication: FOLLICLE CENTRE LYMPHOMA, FOLLICULAR GRADE I, II, III
     Dosage: 20 MG, 1X/DAY
     Route: 041
     Dates: start: 20070914, end: 20070915
  6. FLUDARA [Suspect]
     Indication: FOLLICLE CENTRE LYMPHOMA, FOLLICULAR GRADE I, II, III
     Dosage: 35 MG, 1X/DAY
     Route: 041
     Dates: start: 20070807, end: 20070809

REACTIONS (4)
  - BLOOD IMMUNOGLOBULIN G DECREASED [None]
  - LYMPHOCYTE COUNT DECREASED [None]
  - NEUTROPHIL COUNT DECREASED [None]
  - TOXIC SKIN ERUPTION [None]
